FAERS Safety Report 4699427-2 (Version None)
Quarter: 2005Q2

REPORT INFORMATION
  Report Type: 
  Country: None (occurrence: None)
  Receive Date: 20050622
  Receipt Date: 20050606
  Transmission Date: 20051028
  Serious: Yes (Hospitalization)
  Sender: FDA-Public Use
  Company Number: ACO_0169_2005

PATIENT
  Sex: Female

DRUGS (5)
  1. ZANAFLEX [Suspect]
     Indication: MUSCLE SPASMS
     Dosage: 36 MG  PO
     Route: 048
  2. GABAPENTIN [Suspect]
     Indication: EPILEPSY
     Dosage: 800 MG PO
     Route: 048
  3. BACLOFEN [Suspect]
     Indication: MUSCLE SPASMS
     Dosage: 40 MG PO
     Route: 048
  4. CIPROFLOXACIN [Concomitant]
  5. BENDROFLUAZIDE [Concomitant]

REACTIONS (8)
  - EPILEPSY [None]
  - GLASGOW COMA SCALE ABNORMAL [None]
  - HALLUCINATION [None]
  - INTENTIONAL MISUSE [None]
  - LOSS OF CONSCIOUSNESS [None]
  - OVERDOSE [None]
  - RENAL FAILURE ACUTE [None]
  - URINARY TRACT INFECTION [None]
